FAERS Safety Report 5604927-4 (Version None)
Quarter: 2008Q1

REPORT INFORMATION
  Report Type: 
  Country: None (occurrence: None)
  Receive Date: 20080128
  Receipt Date: 20080122
  Transmission Date: 20080703
  Serious: Yes (Hospitalization)
  Sender: FDA-Public Use
  Company Number: AU-ROXANE LABORATORIES, INC-2008-DE-00416GD

PATIENT
  Age: 5 Year
  Sex: Male
  Weight: 20 kg

DRUGS (3)
  1. PARACETAMOL [Suspect]
     Indication: VIRAL INFECTION
     Route: 048
  2. PARACETAMOL [Suspect]
     Dosage: 152 MG/KG
     Route: 048
  3. ACETAMINOPHEN W/ CODEINE [Suspect]
     Indication: VIRAL INFECTION
     Route: 048

REACTIONS (6)
  - ABDOMINAL PAIN [None]
  - LETHARGY [None]
  - MEDICATION ERROR [None]
  - OVERDOSE [None]
  - PYREXIA [None]
  - VOMITING [None]
